FAERS Safety Report 16139888 (Version 1)
Quarter: 2019Q1

REPORT INFORMATION
  Report Type: Other
  Country: CA (occurrence: CA)
  Receive Date: 20190331
  Receipt Date: 20190331
  Transmission Date: 20190418
  Serious: Yes (Other)
  Sender: FDA-Public Use
  Company Number: CA-APOTEX-2019AP010202

PATIENT
  Age: 67 Year
  Sex: Female

DRUGS (1)
  1. SALBUTAMOL [Suspect]
     Active Substance: ALBUTEROL
     Indication: PRODUCT USED FOR UNKNOWN INDICATION
     Dosage: UNK
     Route: 065

REACTIONS (7)
  - Wheezing [Not Recovered/Not Resolved]
  - Asthma [Not Recovered/Not Resolved]
  - Bacterial infection [Not Recovered/Not Resolved]
  - Dyspnoea [Not Recovered/Not Resolved]
  - Lung infection [Not Recovered/Not Resolved]
  - Loss of personal independence in daily activities [Not Recovered/Not Resolved]
  - Type 2 diabetes mellitus [Not Recovered/Not Resolved]
